FAERS Safety Report 5128183-9 (Version None)
Quarter: 2006Q4

REPORT INFORMATION
  Report Type: 
  Country: None (occurrence: None)
  Receive Date: 20061011
  Receipt Date: 20060925
  Transmission Date: 20070319
  Serious: Yes (Death)
  Sender: FDA-Public Use
  Company Number: 229955

PATIENT
  Age: 86 Year
  Sex: Female
  Weight: 47 kg

DRUGS (2)
  1. RANIBIZUMAB(RANIBIZUMAB)PWDR + SOLVENT,INJECTION SOLN [Suspect]
     Indication: MACULAR DEGENERATION
     Dosage: 0.3 MG, INTRAVITREAL
  2. VISUDYNE [Suspect]
     Indication: MACULAR DEGENERATION

REACTIONS (3)
  - CARDIAC FAILURE CONGESTIVE [None]
  - DIVERTICULUM [None]
  - INTESTINAL PERFORATION [None]
